FAERS Safety Report 19699891 (Version 1)
Quarter: 2021Q3

REPORT INFORMATION
  Report Type: Spontaneous
  Country: US (occurrence: US)
  Receive Date: 20210813
  Receipt Date: 20210813
  Transmission Date: 20211014
  Serious: Yes (Other)
  Sender: FDA-Public Use
  Company Number: US-SA-2021SA268141

PATIENT
  Sex: Female

DRUGS (4)
  1. COSENTYX [Concomitant]
     Active Substance: SECUKINUMAB
  2. HUMIRA [Suspect]
     Active Substance: ADALIMUMAB
  3. DUPIXENT [Suspect]
     Active Substance: DUPILUMAB
     Indication: DERMATITIS ATOPIC
     Route: 058
  4. STELARA [Concomitant]
     Active Substance: USTEKINUMAB
     Route: 042

REACTIONS (3)
  - Pneumonia [Unknown]
  - Autoimmune disorder [Unknown]
  - Pain [Unknown]
